FAERS Safety Report 8602308-2 (Version None)
Quarter: 2012Q3

REPORT INFORMATION
  Report Type: 
  Country: None (occurrence: None)
  Receive Date: 20120817
  Receipt Date: 20120813
  Transmission Date: 20120928
  Serious: Yes (Disabling, Other)
  Sender: FDA-Public Use
  Company Number: US-PFIZER INC-2012145135

PATIENT
  Age: 41 Year
  Sex: Female
  Weight: 99.773 kg

DRUGS (3)
  1. GABAPENTIN [Suspect]
     Dosage: 300 MG, 2X/DAY
     Route: 048
     Dates: start: 20060101, end: 20100101
  2. DILTIAZEM [Concomitant]
     Indication: HYPERTENSION
     Dosage: 120 MG, 2X/DAY
  3. YASMIN [Suspect]
     Indication: CONTRACEPTION
     Dosage: UNK, DAILY
     Route: 048
     Dates: start: 20030301

REACTIONS (9)
  - SEDATION [None]
  - FLUID RETENTION [None]
  - INTERVERTEBRAL DISC PROTRUSION [None]
  - DREAMY STATE [None]
  - FATIGUE [None]
  - PREMENSTRUAL SYNDROME [None]
  - LUMBAR RADICULOPATHY [None]
  - MUSCLE SPASMS [None]
  - ASTHMA [None]
